FAERS Safety Report 8972244 (Version 6)
Quarter: 2013Q2

REPORT INFORMATION
  Report Type: Spontaneous
  Country: JP (occurrence: JP)
  Receive Date: 20121219
  Receipt Date: 20130412
  Transmission Date: 20140414
  Serious: Yes (Death, Other)
  Sender: FDA-Public Use
  Company Number: JP-PFIZER INC-2012317057

PATIENT
  Age: 86 Year
  Sex: Female
  Weight: 46.6 kg

DRUGS (12)
  1. CELECOX [Suspect]
     Indication: PROCEDURAL PAIN
     Dosage: 2 DF, 2X/DAY
     Route: 048
     Dates: start: 20121122, end: 20121204
  2. TRAMCET [Suspect]
     Indication: PROCEDURAL PAIN
     Dosage: 3 DF, 3X/DAY
     Route: 048
     Dates: start: 20121122, end: 20121204
  3. MADOPAR [Concomitant]
     Indication: PARKINSON^S DISEASE
     Dosage: 1 DF, 2X/DAY
     Route: 048
     Dates: start: 20111101, end: 20121204
  4. BI SIFROL [Concomitant]
     Indication: PARKINSON^S DISEASE
     Dosage: 0.5 MG, 1X/DAY
     Route: 048
     Dates: start: 20120104, end: 20121204
  5. BENZFORE [Concomitant]
     Indication: NEUROGENIC BLADDER
     Dosage: 10 MG, 1X/DAY
     Route: 048
     Dates: start: 20120104, end: 20121204
  6. SENNOSIDE [Concomitant]
     Indication: CONSTIPATION
     Dosage: 24 MG, 1X/DAY
     Route: 048
     Dates: start: 20120801, end: 20121204
  7. MUCOSTA [Concomitant]
     Indication: GASTRITIS
     Dosage: 1 DF, 2X/DAY
     Route: 048
     Dates: start: 20121122, end: 20121129
  8. DOMPERIDONE [Concomitant]
     Indication: NAUSEA
     Dosage: 1 DF, 3X/DAY
     Route: 048
     Dates: start: 20121122, end: 20121129
  9. LIXIANA [Concomitant]
     Indication: PROPHYLAXIS
     Dosage: 15 MG, 1X/DAY
     Route: 048
     Dates: start: 20121123, end: 20121129
  10. MICARDIS [Concomitant]
     Indication: HYPERTENSION
     Dosage: 20 MG, 1X/DAY
     Route: 048
     Dates: start: 20121130, end: 20121204
  11. PACETCOOL [Concomitant]
     Indication: PROPHYLAXIS
     Dosage: 1 G, 2X/DAY
     Route: 041
     Dates: start: 20121121, end: 20121123
  12. PL GRAN. [Concomitant]
     Indication: HEADACHE
     Dosage: 1 G, 3X/DAY
     Route: 048
     Dates: start: 20121203, end: 20121204

REACTIONS (3)
  - Acute respiratory failure [Fatal]
  - Cardiac failure [Unknown]
  - Pleural effusion [Unknown]
